FAERS Safety Report 14967239 (Version 1)
Quarter: 2018Q2

REPORT INFORMATION
  Report Type: Spontaneous
  Country: DE (occurrence: DE)
  Receive Date: 20180604
  Receipt Date: 20180604
  Transmission Date: 20180711
  Serious: Yes (Other)
  Sender: FDA-Public Use
  Company Number: DE-CHEPLA-C20170832

PATIENT
  Sex: Male

DRUGS (4)
  1. ATRA [Suspect]
     Active Substance: TRETINOIN
     Indication: ACUTE PROMYELOCYTIC LEUKAEMIA
     Dosage: FOR 2 WEEKS ON/2 WEEKS OFF
     Route: 065
  2. DEXAMETHASONE. [Concomitant]
     Active Substance: DEXAMETHASONE
  3. PREDNISOLONE. [Concomitant]
     Active Substance: PREDNISOLONE
  4. ATO (ARSENIC TRIOXIDE) [Suspect]
     Active Substance: ARSENIC TRIOXIDE
     Indication: ACUTE PROMYELOCYTIC LEUKAEMIA
     Dosage: 5 DAYS PER WEEK FOR 4 WEEKS ON/4 WEEKS OFF
     Route: 065

REACTIONS (7)
  - Lung infiltration [Recovered/Resolved]
  - Pyrexia [Recovered/Resolved]
  - Leukocytosis [Recovered/Resolved]
  - C-reactive protein increased [Recovered/Resolved]
  - Chest pain [Recovered/Resolved]
  - Electrocardiogram QT prolonged [Recovered/Resolved]
  - Pleural effusion [Recovered/Resolved]
